FAERS Safety Report 17319730 (Version 1)
Quarter: 2020Q1

REPORT INFORMATION
  Report Type: Spontaneous
  Country: US (occurrence: US)
  Receive Date: 20200125
  Receipt Date: 20200125
  Transmission Date: 20200409
  Serious: Yes (Hospitalization, Other)
  Sender: FDA-Public Use
  Company Number: US-SHILPA MEDICARE LIMITED-SML-US-2020-00009

PATIENT
  Age: 72 Year
  Sex: Female

DRUGS (5)
  1. IMATINIB, UNKNOWN [Suspect]
     Active Substance: IMATINIB
     Indication: GASTROINTESTINAL STROMAL TUMOUR
     Route: 065
  2. YTTRIUM-90 [Suspect]
     Active Substance: YTTRIUM CHLORIDE Y-90
     Indication: GASTROINTESTINAL STROMAL TUMOUR
     Dosage: RADIOEMOBOLIZATION
     Route: 065
  3. IMATINIB, UNKNOWN [Suspect]
     Active Substance: IMATINIB
     Indication: GASTROINTESTINAL STROMAL TUMOUR
     Route: 065
  4. IMATINIB, UNKNOWN [Suspect]
     Active Substance: IMATINIB
     Route: 065
  5. IMATINIB, UNKNOWN [Suspect]
     Active Substance: IMATINIB
     Route: 065

REACTIONS (5)
  - Metastases to liver [Unknown]
  - Pneumonitis [Recovered/Resolved with Sequelae]
  - Hypoxia [Unknown]
  - Dyspnoea [Unknown]
  - Pyrexia [Unknown]
